FAERS Safety Report 8760380 (Version 1)
Quarter: 2012Q4

REPORT INFORMATION
  Report Type: Spontaneous
  Country: US (occurrence: None)
  Receive Date: 20120829
  Receipt Date: 20120829
  Transmission Date: 20130627
  Serious: No
  Sender: FDA-Public Use
  Company Number: None

PATIENT
  Sex: Female

DRUGS (1)
  1. TEV-TROPIN [Suspect]
     Route: 058
     Dates: start: 20120706

REACTIONS (3)
  - Nausea [None]
  - Dizziness [None]
  - Tremor [None]
